FAERS Safety Report 5573504-6 (Version None)
Quarter: 2007Q4

REPORT INFORMATION
  Report Type: 
  Country: None (occurrence: None)
  Receive Date: 20071226
  Receipt Date: 20071214
  Transmission Date: 20080405
  Serious: Yes (Other)
  Sender: FDA-Public Use
  Company Number: US-AVENTIS-200721576GDDC

PATIENT
  Age: 53 Year
  Sex: Male

DRUGS (1)
  1. AMARYL [Suspect]

REACTIONS (1)
  - CARDIAC FAILURE CONGESTIVE [None]
